FAERS Safety Report 6049309-9 (Version None)
Quarter: 2009Q1

REPORT INFORMATION
  Report Type: 
  Country: None (occurrence: None)
  Receive Date: 20090123
  Receipt Date: 20090122
  Transmission Date: 20090719
  Serious: No
  Sender: FDA-Public Use
  Company Number: US-B.I. PHARMACEUTICALS,INC./RIDGEFIELD-2008-BP-17175BP

PATIENT
  Sex: Male

DRUGS (8)
  1. SPIRIVA [Suspect]
     Indication: EMPHYSEMA
     Dosage: 18MCG
     Route: 055
     Dates: start: 20040101
  2. SPIRIVA [Suspect]
     Indication: DYSPNOEA
  3. ALBUTEROL [Concomitant]
     Indication: EMPHYSEMA
  4. VERAPAMIL [Concomitant]
     Indication: CARDIAC DISORDER
  5. LIPITOR [Concomitant]
     Indication: BLOOD CHOLESTEROL INCREASED
  6. LISINOPRIL [Concomitant]
     Indication: CARDIAC DISORDER
  7. WARFARIN [Concomitant]
     Indication: HEART RATE IRREGULAR
  8. TRAMADOL HCL [Concomitant]
     Indication: ARTHRITIS

REACTIONS (1)
  - DRUG EFFECT DECREASED [None]
